FAERS Safety Report 13606071 (Version 1)
Quarter: 2017Q2

REPORT INFORMATION
  Report Type: Spontaneous
  Country: US (occurrence: US)
  Receive Date: 20170602
  Receipt Date: 20170602
  Transmission Date: 20170830
  Serious: Yes (Death)
  Sender: FDA-Public Use
  Company Number: None

PATIENT
  Age: 76 Year
  Sex: Male

DRUGS (11)
  1. JAKAFI [Concomitant]
     Active Substance: RUXOLITINIB
  2. CEFDINIR. [Concomitant]
     Active Substance: CEFDINIR
  3. LOPRESSOR [Concomitant]
     Active Substance: METOPROLOL TARTRATE
  4. DOXYCYCLINE. [Concomitant]
     Active Substance: DOXYCYCLINE
  5. EPOGEN [Concomitant]
     Active Substance: ERYTHROPOIETIN
  6. ALTACE [Concomitant]
     Active Substance: RAMIPRIL
  7. NORVASC [Concomitant]
     Active Substance: AMLODIPINE BESYLATE
  8. LASIX [Concomitant]
     Active Substance: FUROSEMIDE
  9. TACROLIMUS 0.5 MG SANDOZ [Suspect]
     Active Substance: TACROLIMUS
     Indication: LIVER TRANSPLANT
     Dosage: 0.5 MG QD X 6 DS PER WK PO
     Route: 048
     Dates: start: 20120629, end: 20170519
  10. HUMALOG [Concomitant]
     Active Substance: INSULIN LISPRO
  11. LANTUS [Concomitant]
     Active Substance: INSULIN GLARGINE

REACTIONS (3)
  - Pneumonia bacterial [None]
  - Myocardial infarction [None]
  - Pneumonia fungal [None]

NARRATIVE: CASE EVENT DATE: 20170519
